FAERS Safety Report 16542080 (Version 1)
Quarter: 2019Q3

REPORT INFORMATION
  Report Type: Spontaneous
  Country: US (occurrence: US)
  Receive Date: 20190708
  Receipt Date: 20190708
  Transmission Date: 20191004
  Serious: Yes (Other)
  Sender: FDA-Public Use
  Company Number: US-JNJFOC-20190702766

PATIENT
  Sex: Female

DRUGS (5)
  1. LAMICTAL [Concomitant]
     Active Substance: LAMOTRIGINE
     Indication: EPILEPSY
     Route: 065
  2. KEPPRA [Concomitant]
     Active Substance: LEVETIRACETAM
     Indication: EPILEPSY
     Route: 065
  3. TRAZODONE [Concomitant]
     Active Substance: TRAZODONE HYDROCHLORIDE
     Route: 065
  4. PHENYTOIN. [Concomitant]
     Active Substance: PHENYTOIN
     Route: 065
  5. TOPAMAX [Suspect]
     Active Substance: TOPIRAMATE
     Indication: EPILEPSY
     Route: 048
     Dates: start: 2005, end: 2009

REACTIONS (8)
  - Glaucoma [Not Recovered/Not Resolved]
  - Insomnia [Not Recovered/Not Resolved]
  - Corrective lens user [Not Recovered/Not Resolved]
  - Decreased appetite [Not Recovered/Not Resolved]
  - Attention deficit/hyperactivity disorder [Not Recovered/Not Resolved]
  - Speech disorder [Not Recovered/Not Resolved]
  - Weight decreased [Not Recovered/Not Resolved]
  - Nervousness [Not Recovered/Not Resolved]

NARRATIVE: CASE EVENT DATE: 2005
